FAERS Safety Report 16035699 (Version 2)
Quarter: 2019Q1

REPORT INFORMATION
  Report Type: Spontaneous
  Country: US (occurrence: US)
  Receive Date: 20190305
  Receipt Date: 20190307
  Transmission Date: 20190418
  Serious: Yes (Other)
  Sender: FDA-Public Use
  Company Number: US-PFIZER INC-2019094754

PATIENT
  Age: 66 Year
  Sex: Female

DRUGS (4)
  1. SULFAMETHOXAZOLE/TRIMETHOPRIM [Suspect]
     Active Substance: SULFAMETHOXAZOLE\TRIMETHOPRIM
     Indication: PYELONEPHRITIS
     Dosage: 1 DF, 2X/DAY (DOUBLE STRENGTH AT A DOSE OF 1 TABLET (160/800))
  2. WARFARIN [Interacting]
     Active Substance: WARFARIN
     Indication: EMBOLIC STROKE
     Dosage: 5 MG, DAILY
     Route: 048
  3. WARFARIN [Interacting]
     Active Substance: WARFARIN
     Indication: CEREBROVASCULAR ACCIDENT PROPHYLAXIS
     Dosage: 4 MG, DAILY, (DECREASED THE DOSE BY 20%)
     Route: 048
  4. SULFAMETHOXAZOLE/TRIMETHOPRIM [Interacting]
     Active Substance: SULFAMETHOXAZOLE\TRIMETHOPRIM
     Indication: ANTIBIOTIC PROPHYLAXIS

REACTIONS (4)
  - International normalised ratio increased [Recovering/Resolving]
  - Epistaxis [Unknown]
  - Rectal haemorrhage [Unknown]
  - Drug interaction [Unknown]
